FAERS Safety Report 9124863 (Version 2)
Quarter: 2013Q1

REPORT INFORMATION
  Report Type: Report from Study
  Country: CA (occurrence: CA)
  Receive Date: 20130227
  Receipt Date: 20130301
  Transmission Date: 20140127
  Serious: Yes (Hospitalization)
  Sender: FDA-Public Use
  Company Number: CA-ROCHE-1168299

PATIENT
  Sex: Male
  Weight: 77.1 kg

DRUGS (8)
  1. RITUXAN [Suspect]
     Indication: RHEUMATOID ARTHRITIS
     Route: 042
     Dates: start: 20101118
  2. METHOTREXATE [Concomitant]
  3. OXYCONTIN [Concomitant]
  4. SYMBICORT [Concomitant]
  5. COD LIVER OIL [Concomitant]
  6. DIPHENHYDRAMINE HCL [Concomitant]
     Indication: PREMEDICATION
     Route: 048
     Dates: start: 20101118
  7. ACETAMINOPHEN [Concomitant]
     Indication: PREMEDICATION
     Route: 048
     Dates: start: 20101118
  8. METHYLPREDNISOLONE [Concomitant]
     Indication: PREMEDICATION
     Route: 042
     Dates: start: 20101118

REACTIONS (3)
  - Fall [Unknown]
  - Rib fracture [Not Recovered/Not Resolved]
  - Decubitus ulcer [Not Recovered/Not Resolved]
